FAERS Safety Report 21609851 (Version 2)
Quarter: 2023Q1

REPORT INFORMATION
  Report Type: Spontaneous
  Country: FR (occurrence: FR)
  Receive Date: 20221117
  Receipt Date: 20230313
  Transmission Date: 20230417
  Serious: Yes (Hospitalization, Other)
  Sender: FDA-Public Use
  Company Number: None

PATIENT
  Age: 36 Year
  Sex: Male

DRUGS (6)
  1. AZITHROMYCIN [Suspect]
     Active Substance: AZITHROMYCIN
     Indication: Pneumonia legionella
     Dosage: 500 MILLIGRAM, QD (500 MG,1 DOSE DAILY)
     Route: 065
  2. SPIRAMYCIN [Interacting]
     Active Substance: SPIRAMYCIN
     Indication: Pneumonia legionella
     Dosage: 3 MILLION INTERNATIONAL UNIT, TID
     Route: 065
  3. IMURAN [Suspect]
     Active Substance: AZATHIOPRINE
     Indication: Immunosuppressant drug therapy
     Dosage: UNK
     Route: 065
  4. RIFAMPIN [Interacting]
     Active Substance: RIFAMPIN
     Indication: Pneumonia legionella
     Dosage: 1800 MILLIGRAM, QD (900 MG, BID, 1800 MG DAILY)
     Route: 065
  5. RIFAMPIN [Interacting]
     Active Substance: RIFAMPIN
     Dosage: 1800 MILLIGRAM, QD (900 MG, BID, 1800 MG DAILY)
     Route: 065
  6. CYCLOPHOSPHAMIDE [Concomitant]
     Active Substance: CYCLOPHOSPHAMIDE
     Indication: Immunosuppressant drug therapy
     Dosage: UNK
     Route: 065

REACTIONS (6)
  - Lung consolidation [Unknown]
  - Pneumonia legionella [Not Recovered/Not Resolved]
  - Respiratory symptom [Unknown]
  - Drug interaction [Unknown]
  - Therapeutic response decreased [Unknown]
  - Pyrexia [Unknown]
